FAERS Safety Report 18282189 (Version 1)
Quarter: 2020Q3

REPORT INFORMATION
  Report Type: Spontaneous
  Country: HU (occurrence: HU)
  Receive Date: 20200918
  Receipt Date: 20200918
  Transmission Date: 20201103
  Serious: Yes (Hospitalization, Disabling, Other)
  Sender: FDA-Public Use
  Company Number: HU-SA-2019SA018255

PATIENT

DRUGS (25)
  1. AUBAGIO [Suspect]
     Active Substance: TERIFLUNOMIDE
     Dosage: 14 MG, QD
     Route: 048
     Dates: start: 2018, end: 20181223
  2. JUVERITAL [Suspect]
     Active Substance: RISEDRONATE SODIUM
     Dosage: 35 MG, QW
     Route: 065
  3. TRENTAL [Concomitant]
     Active Substance: PENTOXIFYLLINE
     Dosage: 400 MG, TID
  4. FOLSAV [Concomitant]
     Dosage: 3 MG, QD (MORNING)
     Route: 065
     Dates: start: 2017
  5. DICLOFENAC [Concomitant]
     Active Substance: DICLOFENAC
     Dosage: UNK UNK, PRN
     Route: 065
     Dates: start: 2017
  6. FRONTIN [Concomitant]
     Active Substance: ALPRAZOLAM
     Dosage: 0.25 MG, BID
     Route: 065
     Dates: start: 2017
  7. VITAMIN D NOS [Concomitant]
     Active Substance: VITAMIN D NOS
     Dosage: 1000 IU, QD
     Route: 065
     Dates: start: 2017
  8. PANTOPRAZOLE [Concomitant]
     Active Substance: PANTOPRAZOLE
     Indication: HYPERCHLORHYDRIA
     Dosage: 40 MG, BID
     Route: 065
     Dates: start: 2019
  9. KALIUM [POTASSIUM] [Concomitant]
     Active Substance: POTASSIUM
     Indication: HYPERTENSION
     Dosage: 1 DF, BIW
     Route: 065
     Dates: start: 2019
  10. KALIUM [POTASSIUM] [Concomitant]
     Active Substance: POTASSIUM
     Dosage: UNK UNK, QW
     Route: 065
  11. FURON [FUROSEMIDE] [Concomitant]
     Active Substance: FUROSEMIDE
     Indication: HYPERTENSION
     Dosage: 40 MG, BIW
     Route: 065
     Dates: start: 2019
  12. MILGAMMA [BENFOTIAMINE;CYANOCOBALAMIN] [Concomitant]
     Active Substance: BENFOTIAMINE\CYANOCOBALAMIN
     Dosage: 1 DF, TID, 50 MG BENFOTIAMINE, 250 MG CYANOCOBALAMIN
  13. DITROPAN [Concomitant]
     Active Substance: OXYBUTYNIN CHLORIDE
     Dosage: 5 MG, BID
     Route: 065
     Dates: start: 2017
  14. AUBAGIO [Suspect]
     Active Substance: TERIFLUNOMIDE
     Dosage: 14 MG, QD
     Route: 048
     Dates: start: 2018, end: 20190101
  15. CETIRIZINE [Concomitant]
     Active Substance: CETIRIZINE HYDROCHLORIDE
     Dosage: 10 MG, QD (EVENING)
     Route: 065
  16. RANITIDIN [Concomitant]
     Active Substance: RANITIDINE HYDROCHLORIDE
     Dosage: 1 DF, BID
     Route: 065
     Dates: start: 2017
  17. AUBAGIO [Suspect]
     Active Substance: TERIFLUNOMIDE
     Indication: RELAPSING-REMITTING MULTIPLE SCLEROSIS
     Dosage: 14 MG, QD
     Route: 048
     Dates: start: 201702, end: 2018
  18. METOTHYRIN [Suspect]
     Active Substance: METHIMAZOLE
     Indication: HYPERTHYROIDISM
     Dosage: 10 MG, 2?2.5?2 TABLET/DAY
     Route: 065
  19. METOTHYRIN [Suspect]
     Active Substance: METHIMAZOLE
     Dosage: 10 MG, 1.5 TABLET/DAY
     Route: 065
  20. CITROKALCIUM [Concomitant]
     Indication: OSTEOPOROSIS
     Dosage: 200 MG, BID (1 TAB)
     Route: 065
  21. CHOLECALCIFEROL [Concomitant]
     Active Substance: CHOLECALCIFEROL
     Indication: OSTEOPOROSIS
     Dosage: 2000 IU, QD
     Route: 065
  22. FURON [FUROSEMIDE] [Concomitant]
     Active Substance: FUROSEMIDE
     Dosage: 40 MG, QW
     Route: 065
  23. SELENIUM [Suspect]
     Active Substance: SELENIUM
     Dosage: 1 DF, BID
     Route: 065
  24. AFLAMIN [ACECLOFENAC] [Concomitant]
     Dosage: 100 MG, PRN
     Route: 065
  25. NOOTROPIL [Concomitant]
     Active Substance: PIRACETAM
     Dosage: 1200 MG, BID
     Route: 065

REACTIONS (13)
  - Vertigo [Unknown]
  - Urinary incontinence [Unknown]
  - Secondary progressive multiple sclerosis [Unknown]
  - Muscular weakness [Unknown]
  - Deafness bilateral [Unknown]
  - Asthenia [Unknown]
  - Gait disturbance [Unknown]
  - Ataxia [Unknown]
  - Condition aggravated [Unknown]
  - Kyphosis [Unknown]
  - Stress [Not Recovered/Not Resolved]
  - Cognitive disorder [Unknown]
  - Alopecia [Recovered/Resolved]

NARRATIVE: CASE EVENT DATE: 20170720
